FAERS Safety Report 7391990-6 (Version None)
Quarter: 2011Q2

REPORT INFORMATION
  Report Type: 
  Country: None (occurrence: None)
  Receive Date: 20110404
  Receipt Date: 20110328
  Transmission Date: 20111010
  Serious: Yes (Death)
  Sender: FDA-Public Use
  Company Number: PHHY2011BE26706

PATIENT

DRUGS (1)
  1. GLEEVEC [Suspect]
     Indication: CHRONIC GRAFT VERSUS HOST DISEASE
     Dosage: 400 MG, DAILY
     Route: 048
     Dates: start: 20080201, end: 20100201

REACTIONS (2)
  - DRUG INTOLERANCE [None]
  - NON-HODGKIN'S LYMPHOMA [None]
